FAERS Safety Report 7524048-3 (Version None)
Quarter: 2011Q2

REPORT INFORMATION
  Report Type: 
  Country: None (occurrence: None)
  Receive Date: 20110605
  Receipt Date: 20110531
  Transmission Date: 20111010
  Serious: Yes (Hospitalization)
  Sender: FDA-Public Use
  Company Number: JP-BRISTOL-MYERS SQUIBB COMPANY-15781032

PATIENT
  Age: 65 Year
  Sex: Male
  Weight: 54 kg

DRUGS (14)
  1. HIRUDOID [Concomitant]
     Indication: SKIN DISORDER
     Dosage: ROA : PERCUTANEOUSLY
     Dates: start: 20100908
  2. CEFAZOLIN [Concomitant]
     Indication: ANTIBIOTIC THERAPY
     Route: 042
     Dates: start: 20101227, end: 20110109
  3. AZUNOL [Concomitant]
     Indication: OROPHARYNGEAL PAIN
     Dates: start: 20101221
  4. BISOLVON [Concomitant]
     Indication: PRODUCTIVE COUGH
     Route: 042
     Dates: start: 20101227, end: 20110107
  5. MORPHINE [Concomitant]
     Indication: PAIN
     Route: 058
     Dates: start: 20110103, end: 20110111
  6. MAGNESIUM SULFATE [Concomitant]
     Indication: BOWEL MOVEMENT IRREGULARITY
     Dosage: 1 DF: 1-2 T
     Dates: start: 20101205
  7. SODIUM CHLORIDE [Concomitant]
     Indication: PAIN
     Dosage: 1 DF: 0.5 A
     Route: 042
     Dates: start: 20110102, end: 20110107
  8. CETUXIMAB [Suspect]
     Indication: HEAD AND NECK CANCER
     Dosage: 02SEP2010-17NOV10(76D)  10SEP10-17NOV10(68D)250 MG/M2  RECENT INF(11TH):17NOV10
     Route: 042
     Dates: start: 20100902, end: 20101117
  9. XYLOCAINE [Concomitant]
     Indication: OROPHARYNGEAL PAIN
     Dates: start: 20101221
  10. FLURBIPROFEN [Concomitant]
     Indication: PAIN
     Dosage: 1 DF: 0.5 A
     Route: 042
     Dates: start: 20110102, end: 20110107
  11. CLINDAMYCIN [Concomitant]
     Indication: ANTIBIOTIC THERAPY
     Route: 042
     Dates: start: 20101227, end: 20110109
  12. CISPLATIN [Suspect]
     Indication: HEAD AND NECK CANCER
     Dosage: 2SEP10 100MG/M2 1OCT10 80MG/M2 RECENT INF(2ND):1OCT10
     Route: 042
     Dates: start: 20100902
  13. FLUOROURACIL [Suspect]
     Indication: HEAD AND NECK CANCER
     Dosage: 2SEP10 1000MG/M2 1OCT10-6DEC10 800MG/M2(66D) RECENT INF(20TH):6DEC10
     Route: 042
     Dates: start: 20100902
  14. CARBOPLATIN [Suspect]
     Indication: HEAD AND NECK CANCER
     Dosage: 1 DF: 5 AUC RECENT INF(2ND):2DEC10
     Route: 042
     Dates: start: 20101112, end: 20101202

REACTIONS (1)
  - DYSPHAGIA [None]
